FAERS Safety Report 7332716-1 (Version None)
Quarter: 2011Q1

REPORT INFORMATION
  Report Type: 
  Country: None (occurrence: None)
  Receive Date: 20110304
  Receipt Date: 20110228
  Transmission Date: 20110831
  Serious: Yes (Other)
  Sender: FDA-Public Use
  Company Number: US-AMGEN-USASP2011011555

PATIENT
  Age: 57 Year
  Sex: Female

DRUGS (2)
  1. PROLIA [Suspect]
     Indication: OSTEOPOROSIS POSTMENOPAUSAL
     Dosage: 60 MG, Q6MO
  2. ANTIBIOTICS [Concomitant]

REACTIONS (4)
  - BEDRIDDEN [None]
  - RESPIRATORY TRACT INFECTION [None]
  - CYSTITIS [None]
  - SINUSITIS [None]
